FAERS Safety Report 4806088-8 (Version None)
Quarter: 2005Q4

REPORT INFORMATION
  Report Type: 
  Country: None (occurrence: None)
  Receive Date: 20051021
  Receipt Date: 20051011
  Transmission Date: 20060501
  Serious: Yes (Other)
  Sender: FDA-Public Use
  Company Number: FI-ROCHE-420749

PATIENT
  Age: 17 Year
  Sex: Female

DRUGS (1)
  1. ROACCUTAN [Suspect]
     Indication: ACNE
     Dosage: ALTERNATING DAILY DOSE
     Route: 048
     Dates: start: 20050912, end: 20050919

REACTIONS (1)
  - TOOTHACHE [None]
